FAERS Safety Report 23989735 (Version 1)
Quarter: 2024Q2

REPORT INFORMATION
  Report Type: Spontaneous
  Country: CA (occurrence: CA)
  Receive Date: 20240619
  Receipt Date: 20240619
  Transmission Date: 20240716
  Serious: Yes (Hospitalization)
  Sender: FDA-Public Use
  Company Number: CA-BAYER-2024A088458

PATIENT
  Age: 72 Year
  Sex: Female

DRUGS (1)
  1. ULTRAVIST [Suspect]
     Active Substance: IOPROMIDE
     Indication: Computerised tomogram
     Dosage: 100 ML, ONCE
     Route: 040

REACTIONS (3)
  - Pruritus [Recovered/Resolved]
  - Mouth swelling [Recovered/Resolved]
  - Oral pruritus [Recovered/Resolved]
